FAERS Safety Report 6545569-6 (Version None)
Quarter: 2010Q1

REPORT INFORMATION
  Report Type: 
  Country: None (occurrence: None)
  Receive Date: 20100119
  Receipt Date: 20100115
  Transmission Date: 20100710
  Serious: Yes (Death, Other)
  Sender: FDA-Public Use
  Company Number: 2009008332

PATIENT
  Sex: Male

DRUGS (2)
  1. NUVIGIL [Suspect]
     Dosage: (150 MG),ORAL
     Route: 048
     Dates: end: 20090101
  2. PROVIGIL [Suspect]
     Dosage: ORAL
     Route: 048

REACTIONS (1)
  - SELF-INJURIOUS IDEATION [None]
